FAERS Safety Report 19610175 (Version 2)
Quarter: 2021Q3

REPORT INFORMATION
  Report Type: Spontaneous
  Country: US (occurrence: US)
  Receive Date: 20210726
  Receipt Date: 20210803
  Transmission Date: 20211014
  Serious: Yes (Death, Other)
  Sender: FDA-Public Use
  Company Number: US-PFIZER INC-2021895843

PATIENT
  Age: 74 Year
  Sex: Female

DRUGS (8)
  1. LASIX [Suspect]
     Active Substance: FUROSEMIDE
     Dosage: UNK
  2. ACETAMINOPHEN. [Suspect]
     Active Substance: ACETAMINOPHEN
     Dosage: UNK
  3. TOLECTIN [Suspect]
     Active Substance: TOLMETIN SODIUM
     Dosage: UNK
  4. TORADOL [Suspect]
     Active Substance: KETOROLAC TROMETHAMINE
     Dosage: UNK
  5. PRONESTYL [Suspect]
     Active Substance: PROCAINAMIDE HYDROCHLORIDE
     Dosage: UNK
     Dates: start: 1989
  6. CLINORIL [Suspect]
     Active Substance: SULINDAC
     Dosage: UNK
  7. LORTAB ASA [Suspect]
     Active Substance: ASPIRIN\HYDROCODONE BITARTRATE
     Dosage: UNK
  8. PIPRACIL [Suspect]
     Active Substance: PIPERACILLIN SODIUM
     Dosage: UNK

REACTIONS (1)
  - Haemolytic anaemia [Fatal]
